FAERS Safety Report 8010147 (Version 14)
Quarter: 2013Q3

REPORT INFORMATION
  Report Type: Spontaneous
  Country: US (occurrence: US)
  Receive Date: 20110627
  Receipt Date: 20130716
  Transmission Date: 20140515
  Serious: Yes (Other)
  Sender: FDA-Public Use
  Company Number: PHEH2011US00495

PATIENT
  Sex: Male

DRUGS (8)
  1. ZOMETA [Suspect]
     Dosage: 4 MG, QMO
     Route: 042
  2. TOPROL XL [Concomitant]
     Dosage: 50 MG, QD
  3. AMBIEN [Concomitant]
     Dosage: 10 MG, QD
  4. ZOLADEX [Concomitant]
     Dosage: 10.8 MG,
  5. ASPIRIN ^BAYER^ [Concomitant]
     Dosage: 325 MG, QD
     Route: 048
  6. LISINOPRIL [Concomitant]
     Dosage: 20 MG, QD
  7. NIASPAN [Concomitant]
     Dosage: 500 MG, QD
  8. LOVASTATIN [Concomitant]
     Dosage: 40 MG, QD

REACTIONS (78)
  - Osteonecrosis of jaw [Unknown]
  - Pain [Unknown]
  - Infection [Unknown]
  - Deformity [Unknown]
  - Emotional distress [Unknown]
  - Injury [Unknown]
  - Umbilical hernia [Unknown]
  - Acute sinusitis [Unknown]
  - Bronchitis [Unknown]
  - Haematuria [Unknown]
  - Prostate cancer [Unknown]
  - Fall [Unknown]
  - Rib fracture [Unknown]
  - Osteoarthritis [Unknown]
  - Spinal osteoarthritis [Unknown]
  - Metastases to bone [Unknown]
  - Vertebral foraminal stenosis [Unknown]
  - Lipoma [Unknown]
  - Metastases to spine [Unknown]
  - Oesophagitis [Unknown]
  - Cervical cord compression [Unknown]
  - Sciatica [Unknown]
  - Syncope [Recovered/Resolved]
  - Anaemia [Unknown]
  - Renal cell carcinoma [Unknown]
  - Pneumonia [Unknown]
  - Pneumothorax traumatic [Unknown]
  - Pulmonary mass [Unknown]
  - Diverticulum intestinal [Unknown]
  - Arthritis [Unknown]
  - Exposed bone in jaw [Unknown]
  - Spondylolisthesis [Unknown]
  - Tenderness [Unknown]
  - Fistula [Unknown]
  - Aortic arteriosclerosis [Unknown]
  - Adenocarcinoma [Unknown]
  - Tooth abscess [Unknown]
  - Mastication disorder [Unknown]
  - Hearing impaired [Unknown]
  - Prostate cancer metastatic [Unknown]
  - Visual impairment [Unknown]
  - Renal mass [Unknown]
  - Metastases to bone marrow [Unknown]
  - Essential hypertension [Unknown]
  - Convulsion [Unknown]
  - Diabetes mellitus [Unknown]
  - Autoimmune disorder [Unknown]
  - Stomatitis [Unknown]
  - Nocturia [Unknown]
  - Bone fragmentation [Unknown]
  - Muscle atrophy [Unknown]
  - Claustrophobia [Unknown]
  - Oral discharge [Unknown]
  - Tooth fracture [Unknown]
  - Arterial thrombosis [Unknown]
  - Left ventricular dysfunction [Unknown]
  - Myocardial ischaemia [Unknown]
  - Varicose vein [Unknown]
  - Contusion [Unknown]
  - Intervertebral disc space narrowing [Unknown]
  - Urinary tract infection [Unknown]
  - Intervertebral disc protrusion [Unknown]
  - Haemangioma of bone [Unknown]
  - Leukopenia [Unknown]
  - Hypotension [Unknown]
  - Dyspnoea [Unknown]
  - Lung infiltration [Unknown]
  - Tooth loss [Unknown]
  - Pyrexia [Unknown]
  - Asthenia [Unknown]
  - Mass [Unknown]
  - Myalgia [Unknown]
  - Arthralgia [Unknown]
  - Anxiety [Unknown]
  - Oedema peripheral [Unknown]
  - Hypokalaemia [Unknown]
  - Overweight [Unknown]
  - Gastrooesophageal reflux disease [Unknown]
